FAERS Safety Report 5648482-1 (Version None)
Quarter: 2008Q1

REPORT INFORMATION
  Report Type: 
  Country: None (occurrence: None)
  Receive Date: 20080304
  Receipt Date: 20080304
  Transmission Date: 20080703
  Serious: Yes (Other)
  Sender: FDA-Public Use
  Company Number: None

PATIENT
  Age: 70 Year
  Sex: Male

DRUGS (1)
  1. HEPARIN LOCK-FLUSH [Suspect]

REACTIONS (3)
  - CATHETER RELATED INFECTION [None]
  - ERYTHEMA [None]
  - SERRATIA INFECTION [None]
